FAERS Safety Report 21076842 (Version 3)
Quarter: 2022Q4

REPORT INFORMATION
  Report Type: Spontaneous
  Country: JP (occurrence: JP)
  Receive Date: 20220713
  Receipt Date: 20221005
  Transmission Date: 20230112
  Serious: Yes (Life-Threatening)
  Sender: FDA-Public Use
  Company Number: JP-Eisai-202204353_DVG_P_1

PATIENT
  Age: 85 Year
  Sex: Female

DRUGS (7)
  1. DAYVIGO [Suspect]
     Active Substance: LEMBOREXANT
     Indication: Insomnia
     Dosage: ONCE DAILY AS NEEDED
     Route: 048
     Dates: start: 20220625, end: 20220625
  2. SOLANAX [Suspect]
     Active Substance: ALPRAZOLAM
     Indication: Insomnia
     Route: 048
     Dates: end: 20220623
  3. ALPRAZOLAM [Suspect]
     Active Substance: ALPRAZOLAM
     Indication: Insomnia
     Route: 048
     Dates: start: 20220624, end: 20220626
  4. RISPERDAL [Suspect]
     Active Substance: RISPERIDONE
     Indication: Insomnia
     Route: 048
     Dates: start: 20220622, end: 20220623
  5. RISPERDAL [Suspect]
     Active Substance: RISPERIDONE
     Indication: Restlessness
     Route: 048
     Dates: start: 20220624, end: 20220625
  6. HYDROXYZINE HYDROCHLORIDE [Suspect]
     Active Substance: HYDROXYZINE HYDROCHLORIDE
     Indication: Product used for unknown indication
     Dosage: FREQUENCY UNKNOWN
     Dates: start: 20220621
  7. EDOXABAN TOSYLATE [Concomitant]
     Active Substance: EDOXABAN TOSYLATE
     Indication: Product used for unknown indication
     Dosage: DOSE AND FREQUENCY UNKNOWN
     Route: 048

REACTIONS (1)
  - Hypercapnia [Recovered/Resolved]

NARRATIVE: CASE EVENT DATE: 20220626
